FAERS Safety Report 5441982-9 (Version None)
Quarter: 2007Q3

REPORT INFORMATION
  Report Type: 
  Country: None (occurrence: None)
  Receive Date: 20070904
  Receipt Date: 20070828
  Transmission Date: 20080115
  Serious: Yes (Hospitalization)
  Sender: FDA-Public Use
  Company Number: B0485125A

PATIENT
  Age: 72 Year
  Sex: Male

DRUGS (2)
  1. AUGMENTIN '125' [Suspect]
     Indication: PROPHYLAXIS
     Route: 042
     Dates: start: 20070628, end: 20070702
  2. AUGMENTIN '125' [Suspect]
     Route: 048
     Dates: start: 20070628, end: 20070702

REACTIONS (6)
  - DRUG ERUPTION [None]
  - DYSURIA [None]
  - ERYTHEMA [None]
  - OEDEMA MUCOSAL [None]
  - OEDEMA PERIPHERAL [None]
  - RASH PAPULAR [None]
